FAERS Safety Report 24703142 (Version 1)
Quarter: 2024Q4

REPORT INFORMATION
  Report Type: Spontaneous
  Country: RU (occurrence: RU)
  Receive Date: 20241205
  Receipt Date: 20241205
  Transmission Date: 20250115
  Serious: Yes (Death, Other)
  Sender: PFIZER
  Company Number: RU-PFIZER INC-PV202400156598

PATIENT
  Age: 37 Year
  Sex: Female

DRUGS (1)
  1. BESPONSA [Suspect]
     Active Substance: INOTUZUMAB OZOGAMICIN
     Indication: Acute lymphocytic leukaemia
     Dosage: 0.8MG/M2 (C1D1), 0.5MG/M2 (C1D8, C1D15)
     Route: 042
     Dates: start: 202310, end: 202311

REACTIONS (9)
  - Sepsis [Fatal]
  - Anaemia [Unknown]
  - Thrombocytopenia [Unknown]
  - Neutropenia [Unknown]
  - Graft versus host disease [Unknown]
  - Graft versus host disease in skin [Unknown]
  - Haemophagocytic lymphohistiocytosis [Unknown]
  - Gastrointestinal haemorrhage [Unknown]
  - Cytomegalovirus infection [Unknown]

NARRATIVE: CASE EVENT DATE: 20240301
